FAERS Safety Report 15859147 (Version 1)
Quarter: 2019Q1

REPORT INFORMATION
  Report Type: Spontaneous
  Country: UM (occurrence: UM)
  Receive Date: 20190123
  Receipt Date: 20190123
  Transmission Date: 20190417
  Serious: Yes (Life-Threatening, Hospitalization, Other)
  Sender: FDA-Public Use
  Company Number: None

PATIENT
  Age: 71 Year
  Sex: Female
  Weight: 79.65 kg

DRUGS (15)
  1. GABAPENTIN. [Suspect]
     Active Substance: GABAPENTIN
     Indication: MYALGIA
     Dosage: ?          QUANTITY:1 CAPSULE(S);?
     Route: 048
     Dates: start: 20181022, end: 20181104
  2. CEFDINIR. [Concomitant]
     Active Substance: CEFDINIR
  3. WELLBUTRIN [Concomitant]
     Active Substance: BUPROPION HYDROCHLORIDE
  4. LISINOPRIL AND HYDROCHLOROTHIAZIDE [Concomitant]
     Active Substance: HYDROCHLOROTHIAZIDE\LISINOPRIL
  5. GLUCOSAMINE [Concomitant]
     Active Substance: GLUCOSAMINE
  6. VITAMIN D [Concomitant]
     Active Substance: CHOLECALCIFEROL
  7. SERTRALINE [Concomitant]
     Active Substance: SERTRALINE HYDROCHLORIDE
  8. ATORVASTIN [Concomitant]
     Active Substance: ATORVASTATIN
  9. CLONIZIPAM [Concomitant]
  10. IRON [Concomitant]
     Active Substance: IRON
  11. RESCUE REMEDY NIGHT TIME PEARLS [Concomitant]
  12. GABAPENTIN. [Suspect]
     Active Substance: GABAPENTIN
     Indication: PAIN
     Dosage: ?          QUANTITY:1 CAPSULE(S);?
     Route: 048
     Dates: start: 20181022, end: 20181104
  13. GABAPENTIN. [Suspect]
     Active Substance: GABAPENTIN
     Indication: NERVE COMPRESSION
     Dosage: ?          QUANTITY:1 CAPSULE(S);?
     Route: 048
     Dates: start: 20181022, end: 20181104
  14. MULTIPLE VITAMIN ADULT [Concomitant]
  15. TYLENOL [Concomitant]
     Active Substance: ACETAMINOPHEN

REACTIONS (9)
  - Nightmare [None]
  - Crying [None]
  - Anxiety [None]
  - Disturbance in attention [None]
  - Panic attack [None]
  - Psychotic disorder [None]
  - Fall [None]
  - Mental status changes [None]
  - Apparent death [None]

NARRATIVE: CASE EVENT DATE: 20181026
